FAERS Safety Report 23981733 (Version 1)
Quarter: 2024Q2

REPORT INFORMATION
  Report Type: Other
  Country: PT (occurrence: PT)
  Receive Date: 20240617
  Receipt Date: 20240617
  Transmission Date: 20240716
  Serious: Yes (Life-Threatening, Hospitalization, Other)
  Sender: FDA-Public Use
  Company Number: PT-Spectra Medical Devices, LLC-2158206

PATIENT
  Age: 71 Year
  Sex: Female
  Weight: 65 kg

DRUGS (5)
  1. LIDOCAINE HYDROCHLORIDE [Suspect]
     Active Substance: LIDOCAINE HYDROCHLORIDE
     Indication: Anaesthesia
     Route: 042
  2. ROPIVACAINE. [Suspect]
     Active Substance: ROPIVACAINE HYDROCHLORIDE
     Route: 065
  3. KETAMINE [Suspect]
     Active Substance: KETAMINE
     Route: 042
  4. REMIFENTANIL [Suspect]
     Active Substance: REMIFENTANIL
     Route: 042
  5. PROPOFOL [Suspect]
     Active Substance: PROPOFOL
     Route: 042

REACTIONS (3)
  - Local anaesthetic systemic toxicity [Unknown]
  - Generalised tonic-clonic seizure [Unknown]
  - Cerebellar haemorrhage [Unknown]
